FAERS Safety Report 14854999 (Version 2)
Quarter: 2019Q2

REPORT INFORMATION
  Report Type: Spontaneous
  Country: US (occurrence: US)
  Receive Date: 20180507
  Receipt Date: 20190509
  Transmission Date: 20190711
  Serious: No
  Sender: FDA-Public Use
  Company Number: US-ROCHE-1935003

PATIENT
  Age: 75 Year
  Sex: Female

DRUGS (4)
  1. ESBRIET [Suspect]
     Active Substance: PIRFENIDONE
     Indication: IDIOPATHIC PULMONARY FIBROSIS
     Dosage: 3 PILLS THRICE A DAY
     Route: 048
     Dates: start: 20161203
  2. ESBRIET [Suspect]
     Active Substance: PIRFENIDONE
     Dosage: 3 PILLS THRICE A DAY
     Route: 048
     Dates: start: 20161130
  3. ESBRIET [Suspect]
     Active Substance: PIRFENIDONE
     Indication: INTERSTITIAL LUNG DISEASE
     Dosage: 1 PILL THRICE A DAY
     Route: 048
  4. KEFLEX [Concomitant]
     Active Substance: CEPHALEXIN

REACTIONS (14)
  - Weight decreased [Unknown]
  - Decreased appetite [Unknown]
  - Abdominal pain upper [Unknown]
  - Skin irritation [Unknown]
  - Muscular weakness [Unknown]
  - Productive cough [Unknown]
  - Dyspepsia [Unknown]
  - Asthenia [Unknown]
  - Fatigue [Unknown]
  - Headache [Unknown]
  - Cough [Unknown]
  - Nasopharyngitis [Unknown]
  - Muscle spasms [Unknown]
  - Sinusitis [Unknown]

NARRATIVE: CASE EVENT DATE: 201703
